FAERS Safety Report 16611106 (Version 1)
Quarter: 2019Q3

REPORT INFORMATION
  Report Type: Spontaneous
  Country: US (occurrence: US)
  Receive Date: 20190722
  Receipt Date: 20190722
  Transmission Date: 20191004
  Serious: No
  Sender: FDA-Public Use
  Company Number: US-SA-2019SA192110

PATIENT
  Age: 89 Year
  Sex: Female

DRUGS (5)
  1. CLOPIDOGREL BISULFATE. [Suspect]
     Active Substance: CLOPIDOGREL BISULFATE
     Indication: VASCULAR GRAFT
     Dosage: UNK
     Dates: start: 20190626
  2. ZOCOR [Concomitant]
     Active Substance: SIMVASTATIN
     Dosage: UNK
  3. PLAVIX [Suspect]
     Active Substance: CLOPIDOGREL BISULFATE
     Indication: VASCULAR GRAFT
     Dosage: UNK
     Route: 048
     Dates: start: 2008
  4. ASPIRIN [ACETYLSALICYLIC ACID] [Concomitant]
     Active Substance: ASPIRIN
     Dosage: UNK
  5. METOPROLOL. [Concomitant]
     Active Substance: METOPROLOL
     Dosage: UNK

REACTIONS (2)
  - Taste disorder [Unknown]
  - Headache [Unknown]
